FAERS Safety Report 7629623-3 (Version None)
Quarter: 2011Q3

REPORT INFORMATION
  Report Type: 
  Country: None (occurrence: None)
  Receive Date: 20110722
  Receipt Date: 20110711
  Transmission Date: 20111222
  Serious: Yes (Hospitalization)
  Sender: FDA-Public Use
  Company Number: DE-ROCHE-779401

PATIENT
  Sex: Male
  Weight: 163 kg

DRUGS (4)
  1. LOPERAMIDE [Concomitant]
     Dates: start: 20110509, end: 20110515
  2. OXALIPLATIN [Suspect]
     Indication: RECTAL CANCER
     Dosage: LAST DOSE PRIOR TO SAE: 2 MAY 2011, DOSE SCHEDULE: 50 MG/M2 ON D1, 8, 15, 22 AND 29
     Route: 042
     Dates: start: 20110411
  3. CAPECITABINE [Suspect]
     Indication: RECTAL CANCER
     Dosage: LAST DOSE BEFORE SAE: 12 MAY 2011.SCHEDULE: 825 MG/M2 TWICE DAILY ON DAY 1-33 WITHOUT WEEKENDS
     Route: 048
     Dates: start: 20110411
  4. METAMIZOL [Concomitant]
     Dosage: 30 G++ PER DAY
     Dates: start: 20110509, end: 20110515

REACTIONS (2)
  - GASTRIC ULCER [None]
  - ARTHRITIS REACTIVE [None]
